FAERS Safety Report 5146652-2 (Version None)
Quarter: 2006Q4

REPORT INFORMATION
  Report Type: 
  Country: None (occurrence: None)
  Receive Date: 20061109
  Receipt Date: 20061011
  Transmission Date: 20070319
  Serious: Yes (Hospitalization)
  Sender: FDA-Public Use
  Company Number: DE-AVENTIS-200613042DE

PATIENT
  Age: 41 Year
  Sex: Female

DRUGS (3)
  1. ARAVA [Suspect]
     Indication: JUVENILE ARTHRITIS
     Route: 048
     Dates: start: 20010101
  2. PREDNISOLON [Concomitant]
     Indication: POLYARTHRITIS
     Route: 048
  3. UNKNOWN DRUG [Concomitant]
     Indication: POLYARTHRITIS

REACTIONS (3)
  - ABORTION INCOMPLETE [None]
  - DRUG EXPOSURE DURING PREGNANCY [None]
  - PREGNANCY [None]
